FAERS Safety Report 5049978-6 (Version None)
Quarter: 2006Q3

REPORT INFORMATION
  Report Type: 
  Country: None (occurrence: None)
  Receive Date: 20060707
  Receipt Date: 20060622
  Transmission Date: 20061208
  Serious: Yes (Other)
  Sender: FDA-Public Use
  Company Number: 2006S1005749

PATIENT
  Age: 36 Year
  Sex: Male
  Weight: 95.2554 kg

DRUGS (5)
  1. FENTANYL TRANSDERMAL SYSTEM [Suspect]
     Indication: FLANK PAIN
     Dosage: 50 UG/HR;Q3D;TRANS
     Route: 062
     Dates: start: 20060101
  2. FENTANYL TRANSDERMAL SYSTEM [Suspect]
     Indication: PAIN
     Dosage: 50 UG/HR;Q3D;TRANS
     Route: 062
     Dates: start: 20060101
  3. FENTANYL TRANSDERMAL SYSTEM [Suspect]
     Indication: FLANK PAIN
     Dosage: 100 UG/HR;Q3D;TRANS
     Route: 062
     Dates: start: 20060101
  4. FENTANYL TRANSDERMAL SYSTEM [Suspect]
     Indication: PAIN
     Dosage: 100 UG/HR;Q3D;TRANS
     Route: 062
     Dates: start: 20060101
  5. MORPHINE [Concomitant]

REACTIONS (5)
  - DRUG WITHDRAWAL SYNDROME [None]
  - INADEQUATE ANALGESIA [None]
  - PAIN [None]
  - PHARMACEUTICAL PRODUCT COMPLAINT [None]
  - WRONG TECHNIQUE IN DRUG USAGE PROCESS [None]
